FAERS Safety Report 17725688 (Version 3)
Quarter: 2020Q2

REPORT INFORMATION
  Report Type: Spontaneous
  Country: US (occurrence: US)
  Receive Date: 20200429
  Receipt Date: 20200501
  Transmission Date: 20200714
  Serious: No
  Sender: FDA-Public Use
  Company Number: US-PFIZER INC-2020172483

PATIENT
  Age: 59 Year
  Sex: Female
  Weight: 52.62 kg

DRUGS (2)
  1. ALPRAZOLAM. [Suspect]
     Active Substance: ALPRAZOLAM
     Dosage: 1 MG
     Dates: start: 20200426
  2. ALPRAZOLAM. [Suspect]
     Active Substance: ALPRAZOLAM
     Indication: ANXIETY
     Dosage: 1 MG, AS NEEDED (2-0.5MG EXTENDED-RELEASE TABLETS TAKEN AT ONCE AS NEEDED)

REACTIONS (1)
  - Drug ineffective [Unknown]
